FAERS Safety Report 18319343 (Version 2)
Quarter: 2020Q4

REPORT INFORMATION
  Report Type: Spontaneous
  Country: DE (occurrence: DE)
  Receive Date: 20200928
  Receipt Date: 20201214
  Transmission Date: 20210113
  Serious: Yes (Other)
  Sender: FDA-Public Use
  Company Number: NVSC2020DE257403

PATIENT
  Age: 49 Year
  Sex: Female

DRUGS (3)
  1. LETROZOL GLENMARK [Suspect]
     Active Substance: LETROZOLE
     Indication: BREAST CANCER FEMALE
     Dosage: 2.5 MG, QD
     Route: 048
     Dates: start: 201806, end: 2018
  2. VITA D [Concomitant]
     Indication: BREAST CANCER
     Dosage: UNK
     Route: 065
     Dates: start: 2018
  3. ANASTROZOLE  1 MG [Suspect]
     Active Substance: ANASTROZOLE
     Indication: BREAST CANCER
     Dosage: 1 MG, QD, (AS REPORTED:ONE FILM COATED TABLET/DAY)
     Route: 048
     Dates: start: 201807

REACTIONS (8)
  - Back pain [Recovering/Resolving]
  - Sleep disorder [Recovered/Resolved]
  - Oedema [Recovered/Resolved]
  - Pain in extremity [Recovering/Resolving]
  - Osteopenia [Not Recovered/Not Resolved]
  - Blood alkaline phosphatase increased [Not Recovered/Not Resolved]
  - Osteoporosis [Not Recovered/Not Resolved]
  - Leukopenia [Not Recovered/Not Resolved]

NARRATIVE: CASE EVENT DATE: 2018
